FAERS Safety Report 22170750 (Version 2)
Quarter: 2023Q2

REPORT INFORMATION
  Report Type: Spontaneous
  Country: CN (occurrence: CN)
  Receive Date: 20230404
  Receipt Date: 20230405
  Transmission Date: 20230721
  Serious: Yes (Life-Threatening, Other)
  Sender: FDA-Public Use
  Company Number: CN-009507513-2304CHN000177

PATIENT
  Age: 20 Year
  Sex: Male
  Weight: 78 kg

DRUGS (2)
  1. CILASTATIN SODIUM\IMIPENEM [Suspect]
     Active Substance: CILASTATIN SODIUM\IMIPENEM
     Indication: Septic shock
     Dosage: 0.5 G, QD, IV DRIP
     Route: 041
     Dates: start: 20230309, end: 20230319
  2. PROGRAF [Concomitant]
     Active Substance: TACROLIMUS
     Indication: Prophylaxis against transplant rejection
     Dosage: 0.5 MG, QD, ORAL
     Route: 048
     Dates: start: 20230314, end: 20230319

REACTIONS (4)
  - Seizure [Recovering/Resolving]
  - Somnolence [Unknown]
  - Product use in unapproved indication [Unknown]
  - Inappropriate schedule of product administration [Unknown]

NARRATIVE: CASE EVENT DATE: 20230319
